FAERS Safety Report 19794720 (Version 1)
Quarter: 2021Q3

REPORT INFORMATION
  Report Type: Spontaneous
  Country: US (occurrence: US)
  Receive Date: 20210907
  Receipt Date: 20210907
  Transmission Date: 20211014
  Serious: No
  Sender: FDA-Public Use
  Company Number: US-009507513-2108USA004123

PATIENT
  Age: 32 Year
  Sex: Male

DRUGS (1)
  1. TEMODAR [Suspect]
     Active Substance: TEMOZOLOMIDE
     Indication: GLIOBLASTOMA
     Dosage: 200 MILLIGRAM/SQ. METER PER DAY, DAYS 1?5 EVERY 28?DAY CYCLE, FOR 12 CYCLES

REACTIONS (2)
  - Product use issue [Unknown]
  - Off label use [Unknown]
